FAERS Safety Report 23563843 (Version 1)
Quarter: 2024Q1

REPORT INFORMATION
  Report Type: Report from Study
  Country: US (occurrence: US)
  Receive Date: 20240226
  Receipt Date: 20240226
  Transmission Date: 20240410
  Serious: Yes (Hospitalization, Other)
  Sender: FDA-Public Use
  Company Number: US-ABBVIE-5364040

PATIENT
  Sex: Male

DRUGS (5)
  1. SKYRIZI [Suspect]
     Active Substance: RISANKIZUMAB-RZAA
     Indication: Crohn^s disease
     Dosage: FORM STRENGTH- 2.4 MILLILITRE(S)?FORM STRENGTH: 360MG?FREQUENCY TEXT: WEEK 12
     Route: 058
     Dates: start: 20230729
  2. SKYRIZI [Suspect]
     Active Substance: RISANKIZUMAB-RZAA
     Dosage: FORM STRENGTH: 360MG
     Route: 058
  3. SKYRIZI [Suspect]
     Active Substance: RISANKIZUMAB-RZAA
     Indication: Crohn^s disease
     Dosage: TIME INTERVAL: TOTAL: WEEK 4?FORM STRENGTH: 600MG
     Route: 042
     Dates: start: 202305, end: 202305
  4. SKYRIZI [Suspect]
     Active Substance: RISANKIZUMAB-RZAA
     Indication: Crohn^s disease
     Dosage: TIME INTERVAL: TOTAL: WEEK 8?FORM STRENGTH: 600MG
     Route: 042
     Dates: start: 202306, end: 202306
  5. SKYRIZI [Suspect]
     Active Substance: RISANKIZUMAB-RZAA
     Indication: Crohn^s disease
     Dosage: TIME INTERVAL: TOTAL: WEEK 0?FORM STRENGTH: 600MG
     Route: 042
     Dates: start: 202304, end: 202304

REACTIONS (11)
  - Intestinal obstruction [Unknown]
  - Gastrointestinal sounds abnormal [Not Recovered/Not Resolved]
  - Abdominal pain [Recovering/Resolving]
  - Intestinal stenosis [Unknown]
  - Gastrointestinal disorder [Unknown]
  - Hypophagia [Unknown]
  - Adverse food reaction [Recovering/Resolving]
  - Flatulence [Recovering/Resolving]
  - Abdominal distension [Recovering/Resolving]
  - Haemorrhage [Unknown]
  - Hyperphagia [Unknown]

NARRATIVE: CASE EVENT DATE: 20230101
